FAERS Safety Report 17477894 (Version 2)
Quarter: 2020Q4

REPORT INFORMATION
  Report Type: Report from Study
  Country: BR (occurrence: BR)
  Receive Date: 20200228
  Receipt Date: 20201102
  Transmission Date: 20210113
  Serious: Yes (Other)
  Sender: FDA-Public Use
  Company Number: BR-JNJFOC-20191142030

PATIENT
  Age: 5 Decade
  Sex: Male

DRUGS (4)
  1. STELARA [Suspect]
     Active Substance: USTEKINUMAB
     Indication: PSORIASIS
     Dosage: THE LAST APPLICATION TOOK PLACE ON 10-OCT-2019
     Route: 058
  2. STELARA [Suspect]
     Active Substance: USTEKINUMAB
  3. IBUPROFEN. [Suspect]
     Active Substance: IBUPROFEN
     Indication: TOOTH DISORDER
     Route: 065
  4. ACETAMINOPHEN. [Suspect]
     Active Substance: ACETAMINOPHEN
     Indication: TOOTH DISORDER

REACTIONS (6)
  - Stress [Unknown]
  - Psoriasis [Not Recovered/Not Resolved]
  - Inappropriate schedule of product administration [Unknown]
  - Pneumonia [Unknown]
  - Tooth disorder [Unknown]
  - Pruritus [Unknown]

NARRATIVE: CASE EVENT DATE: 2019
